FAERS Safety Report 9673145 (Version 3)
Quarter: 2014Q1

REPORT INFORMATION
  Report Type: Spontaneous
  Country: US (occurrence: US)
  Receive Date: 20131106
  Receipt Date: 20140102
  Transmission Date: 20141002
  Serious: Yes (Other)
  Sender: FDA-Public Use
  Company Number: US-AMGEN-USASP2013072488

PATIENT
  Age: 64 Year
  Sex: Female
  Weight: 65.31 kg

DRUGS (14)
  1. ENBREL [Suspect]
     Indication: RHEUMATOID ARTHRITIS
     Dosage: 25 MG, EVERY 10 DAYS
     Route: 058
     Dates: start: 20091011, end: 20131011
  2. PREDNISONE [Concomitant]
     Indication: RHEUMATOID ARTHRITIS
     Dosage: 5 MG, QD
     Route: 048
  3. PROGRAF [Concomitant]
     Dosage: 0.5 MG, BID
  4. ZOLPIDEM [Concomitant]
     Indication: SLEEP DISORDER
     Dosage: 10 MG, AT BED TIME AS NECESSARY
  5. FUROSEMIDE [Concomitant]
     Indication: RENAL TRANSPLANT
     Dosage: 20 MG, TWO IN THE MORNING AND ONE TABLET IN THE AFTERNOON
     Route: 048
  6. METOPROLOL [Concomitant]
     Indication: HYPERTENSION
     Dosage: 50 MG, UNK
  7. POTASSIUM [Concomitant]
     Dosage: UNK UNK, TWO TABLETS EVERY DAY
  8. PRENATAL VITAMINS                  /07499601/ [Concomitant]
     Dosage: UNK UNK, DAILY
  9. URSO                               /00465701/ [Concomitant]
     Dosage: 500 MG, BID
  10. MAGNESIUM OXIDE [Concomitant]
     Dosage: 420 MG,2 THREE TIMES DAILY
  11. ESTRADIOL [Concomitant]
     Dosage: 0.05 MG/24 HR TRANSDERMAL PATCH TWICE WEEKLY
     Route: 062
  12. CALCIUM                            /07357001/ [Concomitant]
     Dosage: 1500 MG (600 MG CALCIUM)
  13. WARFARIN [Concomitant]
     Indication: ANTICOAGULANT THERAPY
     Dosage: 2 MG,
     Route: 048
  14. VITAMIN D                          /00107901/ [Concomitant]
     Dosage: 400 UNIT, UNK
     Route: 048

REACTIONS (5)
  - Cellulitis [Not Recovered/Not Resolved]
  - Contusion [Not Recovered/Not Resolved]
  - Laceration [Not Recovered/Not Resolved]
  - Skeletal injury [Not Recovered/Not Resolved]
  - Limb discomfort [Unknown]
